FAERS Safety Report 4359044-0 (Version None)
Quarter: 2004Q2

REPORT INFORMATION
  Report Type: 
  Country: None (occurrence: None)
  Receive Date: 20040517
  Receipt Date: 20040507
  Transmission Date: 20050107
  Serious: Yes (Hospitalization)
  Sender: FDA-Public Use
  Company Number: ES-GLAXOSMITHKLINE-B0332436A

PATIENT
  Age: 32 Year
  Sex: Male
  Weight: 88 kg

DRUGS (2)
  1. ZINNAT [Suspect]
     Indication: TONSILLITIS
     Route: 048
     Dates: start: 20030305, end: 20030309
  2. ACETAMINOPHEN [Suspect]
     Indication: TONSILLITIS
     Route: 048
     Dates: start: 20030305, end: 20030309

REACTIONS (1)
  - LEUKOCYTOCLASTIC VASCULITIS [None]
